FAERS Safety Report 12654863 (Version 4)
Quarter: 2016Q3

REPORT INFORMATION
  Report Type: Spontaneous
  Country: JP (occurrence: JP)
  Receive Date: 20160816
  Receipt Date: 20160916
  Transmission Date: 20161109
  Serious: Yes (Hospitalization, Other)
  Sender: FDA-Public Use
  Company Number: JP-PFIZER INC-2016352892

PATIENT
  Age: 72 Year
  Sex: Male
  Weight: 71 kg

DRUGS (5)
  1. FLUOROURACIL. [Suspect]
     Active Substance: FLUOROURACIL
     Dosage: 4000 MG, 1X/DAY
     Route: 041
     Dates: start: 20160119, end: 20160627
  2. 5-FU KYOWA [Suspect]
     Active Substance: FLUOROURACIL
     Dosage: 650 MG, 1X/DAY
     Route: 041
     Dates: start: 20160119, end: 20160202
  3. LEVOFOLINATE [Concomitant]
     Active Substance: LEVOLEUCOVORIN CALCIUM
  4. OXALIPLATIN 100MG/20ML HOSPIRA [Suspect]
     Active Substance: OXALIPLATIN
     Indication: RECTAL CANCER METASTATIC
     Dosage: 140 MG, 1X/DAY
     Route: 041
     Dates: start: 20160119, end: 20160627
  5. AVASTIN [Suspect]
     Active Substance: BEVACIZUMAB
     Dosage: 360 MG, 1X/DAY
     Route: 041
     Dates: start: 20160119, end: 20160627

REACTIONS (1)
  - Interstitial lung disease [Not Recovered/Not Resolved]

NARRATIVE: CASE EVENT DATE: 20160714
